FAERS Safety Report 4578748-8 (Version None)
Quarter: 2005Q1

REPORT INFORMATION
  Report Type: 
  Country: None (occurrence: None)
  Receive Date: 20050209
  Receipt Date: 20050209
  Transmission Date: 20050727
  Serious: Yes (Hospitalization)
  Sender: FDA-Public Use
  Company Number: None

PATIENT
  Age: 74 Year
  Sex: Female
  Weight: 86.1834 kg

DRUGS (1)
  1. LISINOPRIL [Suspect]
     Indication: BLOOD PRESSURE
     Dosage: ONE BY MOUTH  2 X A DAY
     Route: 048
     Dates: start: 20041109, end: 20050106

REACTIONS (1)
  - DRUG HYPERSENSITIVITY [None]
